FAERS Safety Report 5833955-9 (Version None)
Quarter: 2008Q3

REPORT INFORMATION
  Report Type: 
  Country: None (occurrence: None)
  Receive Date: 20080731
  Receipt Date: 20080716
  Transmission Date: 20090109
  Serious: Yes (Death)
  Sender: FDA-Public Use
  Company Number: 2008AL003483

PATIENT
  Age: 80 Year
  Sex: Female
  Weight: 47.6277 kg

DRUGS (1)
  1. DIGOXIN [Suspect]
     Dosage: DAILY, PO
     Route: 048

REACTIONS (2)
  - GASTRIC DISORDER [None]
  - NAUSEA [None]
